FAERS Safety Report 9459833 (Version 2)
Quarter: 2013Q3

REPORT INFORMATION
  Report Type: Spontaneous
  Country: US (occurrence: US)
  Receive Date: 20130815
  Receipt Date: 20130906
  Transmission Date: 20140515
  Serious: Yes (Other)
  Sender: FDA-Public Use
  Company Number: US-PFIZER INC-2013236249

PATIENT
  Age: 27 Year
  Sex: Female
  Weight: 107 kg

DRUGS (1)
  1. LYRICA [Suspect]
     Indication: FIBROMYALGIA
     Dosage: 150 MG, 2X/DAY
     Dates: start: 20100222, end: 201009

REACTIONS (9)
  - Adrenal insufficiency [Not Recovered/Not Resolved]
  - Suicide attempt [Unknown]
  - Coma [Recovered/Resolved]
  - Intracranial pressure increased [Unknown]
  - CSF volume increased [Unknown]
  - Dizziness [Unknown]
  - Blood pressure fluctuation [Unknown]
  - Mental disorder [Recovering/Resolving]
  - Weight increased [Unknown]
